FAERS Safety Report 9771177 (Version 2)
Quarter: 2014Q2

REPORT INFORMATION
  Report Type: Spontaneous
  Country: US (occurrence: US)
  Receive Date: 20131218
  Receipt Date: 20140605
  Transmission Date: 20141212
  Serious: Yes (Hospitalization)
  Sender: FDA-Public Use
  Company Number: US-B.I. PHARMACEUTICALS,INC./RIDGEFIELD-2013-BI-41774BP

PATIENT
  Sex: Female
  Weight: 97.07 kg

DRUGS (12)
  1. PRADAXA [Suspect]
     Indication: ATRIAL FIBRILLATION
     Dosage: 300 MG
     Route: 065
     Dates: start: 20111223, end: 20120112
  2. CLONIDINE HCL [Concomitant]
     Dosage: 0.2 MG
     Route: 048
  3. DICLOFENAC SODIUM [Concomitant]
     Dosage: 150 MG
     Route: 048
  4. FLEXERIL [Concomitant]
     Route: 048
  5. GLIMEPIRIDE [Concomitant]
     Dosage: 2 MG
     Route: 048
  6. HYDROCHLOROTHIAZIDE [Concomitant]
     Dosage: 25 MG
     Route: 048
  7. LEVOTHYROXINE [Concomitant]
     Dosage: 50 MCG
     Route: 048
  8. LISINOPRIL [Concomitant]
     Dosage: 40 MG
     Route: 048
  9. MAGNESIUM [Concomitant]
     Route: 065
  10. VESICARE [Concomitant]
     Dosage: 10 MG
     Route: 048
  11. LEXAPRO [Concomitant]
     Route: 065
  12. RYTHMOL [Concomitant]
     Dosage: 450 MG
     Route: 065

REACTIONS (4)
  - Gastrointestinal haemorrhage [Unknown]
  - Coagulopathy [Unknown]
  - Acute myocardial infarction [Unknown]
  - Renal failure acute [Unknown]
